FAERS Safety Report 10017930 (Version 2)
Quarter: 2014Q1

REPORT INFORMATION
  Report Type: Spontaneous
  Country: ES (occurrence: ES)
  Receive Date: 20140318
  Receipt Date: 20140318
  Transmission Date: 20141002
  Serious: Yes (Other)
  Sender: FDA-Public Use
  Company Number: ES-BRISTOL-MYERS SQUIBB COMPANY-20311379

PATIENT
  Age: 87 Year
  Sex: Female

DRUGS (1)
  1. ELIQUIS [Suspect]

REACTIONS (5)
  - Venous thrombosis [Unknown]
  - Fall [Unknown]
  - Humerus fracture [Unknown]
  - Femur fracture [Unknown]
  - Pneumonia [Unknown]
